FAERS Safety Report 6125741-X (Version None)
Quarter: 2009Q1

REPORT INFORMATION
  Report Type: 
  Country: None (occurrence: None)
  Receive Date: 20090319
  Receipt Date: 20090319
  Transmission Date: 20090719
  Serious: Yes (Other)
  Sender: FDA-Public Use
  Company Number: None

PATIENT
  Sex: Female
  Weight: 53.5244 kg

DRUGS (1)
  1. RELANZA [Suspect]
     Indication: INFLUENZA IMMUNISATION
     Dosage: 2 INHALATIONS PER DAY
     Dates: start: 20090310, end: 20090317

REACTIONS (9)
  - ASTHENIA [None]
  - CHILLS [None]
  - DIZZINESS [None]
  - DYSARTHRIA [None]
  - FEELING ABNORMAL [None]
  - METAMORPHOPSIA [None]
  - NAUSEA [None]
  - PAIN [None]
  - POOR QUALITY SLEEP [None]
